FAERS Safety Report 17013909 (Version 2)
Quarter: 2023Q2

REPORT INFORMATION
  Report Type: Spontaneous
  Country: PT (occurrence: PT)
  Receive Date: 20191111
  Receipt Date: 20230622
  Transmission Date: 20230722
  Serious: Yes (Death, Hospitalization, Other)
  Sender: FDA-Public Use
  Company Number: PT-ALTER-2019-00346

PATIENT
  Age: 47 Year
  Sex: Male

DRUGS (8)
  1. QUETIAPINE [Interacting]
     Active Substance: QUETIAPINE
     Indication: Schizophrenia
     Dosage: UNK
     Route: 065
  2. QUETIAPINE [Interacting]
     Active Substance: QUETIAPINE
     Indication: Intellectual disability
  3. ZOTEPINE [Interacting]
     Active Substance: ZOTEPINE
     Indication: Schizophrenia
     Dosage: UNK
     Route: 065
  4. HALOPERIDOL [Interacting]
     Active Substance: HALOPERIDOL
     Indication: Schizophrenia
     Dosage: UNK
     Route: 065
  5. CYAMEMAZINE [Interacting]
     Active Substance: CYAMEMAZINE
     Indication: Schizophrenia
     Dosage: UNK
     Route: 065
  6. BIPERIDEN [Interacting]
     Active Substance: BIPERIDEN
     Indication: Product used for unknown indication
     Dosage: UNK
     Route: 065
  7. DOMPERIDONE [Concomitant]
     Active Substance: DOMPERIDONE
     Indication: Product used for unknown indication
     Dosage: UNK
     Route: 065
  8. CARBAMAZEPINE [Concomitant]
     Active Substance: CARBAMAZEPINE
     Indication: Product used for unknown indication
     Dosage: UNK
     Route: 065

REACTIONS (4)
  - Colitis ischaemic [Fatal]
  - Colectomy total [Fatal]
  - Depressed level of consciousness [Fatal]
  - Shock [Fatal]
